FAERS Safety Report 19642581 (Version 1)
Quarter: 2021Q3

REPORT INFORMATION
  Report Type: Spontaneous
  Country: MY (occurrence: MY)
  Receive Date: 20210730
  Receipt Date: 20210730
  Transmission Date: 20211014
  Serious: Yes (Hospitalization)
  Sender: FDA-Public Use
  Company Number: MY-PFIZER INC-202100911816

PATIENT
  Sex: Female

DRUGS (1)
  1. LORVIQUA [Suspect]
     Active Substance: LORLATINIB
     Dosage: 100 MG

REACTIONS (1)
  - Renal impairment [Unknown]
